FAERS Safety Report 6141435-9 (Version None)
Quarter: 2009Q2

REPORT INFORMATION
  Report Type: 
  Country: None (occurrence: None)
  Receive Date: 20090402
  Receipt Date: 20090323
  Transmission Date: 20091009
  Serious: Yes (Hospitalization)
  Sender: FDA-Public Use
  Company Number: AR-AMGEN-US340308

PATIENT
  Age: 66 Year
  Sex: Male

DRUGS (2)
  1. ENBREL [Suspect]
     Indication: PSORIASIS
     Dosage: UNSPECIFIED DOSE
     Route: 058
     Dates: start: 20080316, end: 20090316
  2. NEOTIGASON [Concomitant]
     Indication: HYPERKERATOSIS
     Route: 065

REACTIONS (3)
  - DERMATITIS EXFOLIATIVE [None]
  - SKIN INFECTION [None]
  - SUBCUTANEOUS ABSCESS [None]
